FAERS Safety Report 18622043 (Version 1)
Quarter: 2020Q4

REPORT INFORMATION
  Report Type: Report from Study
  Country: US (occurrence: US)
  Receive Date: 20201216
  Receipt Date: 20201216
  Transmission Date: 20210114
  Serious: Yes (Other)
  Sender: FDA-Public Use
  Company Number: US-GILEAD-2020-0508691

PATIENT
  Age: 74 Year
  Sex: Female

DRUGS (1)
  1. AZTREONAM LYSINE [Suspect]
     Active Substance: AZTREONAM LYSINE
     Indication: CYSTIC FIBROSIS
     Dosage: 75 MG, TID; 28 DAYS ON AND 28 DAYS OFF
     Route: 065
     Dates: start: 20180905

REACTIONS (5)
  - Post procedural complication [Unknown]
  - Intentional dose omission [Unknown]
  - Anxiety [Not Recovered/Not Resolved]
  - Cataract [Unknown]
  - Ocular discomfort [Not Recovered/Not Resolved]
